FAERS Safety Report 9169285 (Version 3)
Quarter: 2013Q4

REPORT INFORMATION
  Report Type: Spontaneous
  Country: US (occurrence: US)
  Receive Date: 20130318
  Receipt Date: 20131002
  Transmission Date: 20140711
  Serious: Yes (Hospitalization)
  Sender: FDA-Public Use
  Company Number: US-B.I. PHARMACEUTICALS,INC./RIDGEFIELD-2013-BI-06651BP

PATIENT
  Age: 85 Year
  Sex: Female
  Weight: 70.31 kg

DRUGS (15)
  1. PRADAXA [Suspect]
     Indication: ATRIAL FIBRILLATION
     Dosage: 300 MG
     Route: 048
     Dates: start: 201112, end: 20120215
  2. TYLENOL PM [Concomitant]
  3. ASPIRIN [Concomitant]
  4. XANAX [Concomitant]
     Dosage: 2 MG
     Route: 048
  5. CARDIZEM [Concomitant]
     Dosage: 360 MG
     Route: 048
  6. LASIX [Concomitant]
     Dosage: 40 MG
     Route: 048
  7. GLIMEPIRIDE [Concomitant]
     Dosage: 4 MG
     Route: 048
  8. LATANOPROST [Concomitant]
     Route: 031
  9. LEVOTHYROXINE [Concomitant]
     Dosage: 0.5 MG
     Route: 048
  10. METOPROLOL [Concomitant]
     Dosage: 100 MG
     Route: 048
  11. PERCOCET [Concomitant]
     Route: 048
  12. SERTRALINE [Concomitant]
     Dosage: 50 MG
     Route: 048
  13. SIMVASTATIN [Concomitant]
     Dosage: 10 MG
     Route: 048
  14. LEVEMIR [Concomitant]
  15. POTASSIUM [Concomitant]

REACTIONS (5)
  - Gastrointestinal haemorrhage [Recovered/Resolved]
  - Haemorrhagic anaemia [Unknown]
  - Coagulopathy [Unknown]
  - Leukocytosis [Unknown]
  - Hypoglycaemia [Recovered/Resolved]
